FAERS Safety Report 13530374 (Version 1)
Quarter: 2017Q2

REPORT INFORMATION
  Report Type: Spontaneous
  Country: BD (occurrence: BD)
  Receive Date: 20170509
  Receipt Date: 20170509
  Transmission Date: 20170830
  Serious: Yes (Hospitalization)
  Sender: FDA-Public Use
  Company Number: BD-IMPAX LABORATORIES, INC-2017-IPXL-01265

PATIENT
  Age: 44 Year
  Sex: Male
  Weight: 76 kg

DRUGS (16)
  1. INSULIN [Concomitant]
     Active Substance: INSULIN NOS
     Dosage: 100 UNITS OF REGULAR INSULIN DILUTED IN 1000 ML NORMAL SALINE
     Route: 050
  2. PIOGLITAZONE. [Concomitant]
     Active Substance: PIOGLITAZONE
     Indication: DIABETES MELLITUS
     Dosage: 45 MG, DAILY
     Route: 065
  3. METFORMIN HYDROCHLORIDE ER [Suspect]
     Active Substance: METFORMIN HYDROCHLORIDE
     Dosage: INCREASED UP TO 3400 MG PER DAY STEP BY STEP
     Route: 065
  4. GLIMEPIRIDE. [Suspect]
     Active Substance: GLIMEPIRIDE
     Dosage: 4 MG, UNK
     Route: 065
  5. INSULIN [Concomitant]
     Active Substance: INSULIN NOS
     Indication: DIABETES MELLITUS
     Dosage: UNK
     Route: 042
  6. INSULIN [Concomitant]
     Active Substance: INSULIN NOS
     Dosage: 950 IU, DAILY, DAY 100 OF HOSPILATIZATION EVERY 24 HOUR
     Route: 065
  7. METFORMIN HYDROCHLORIDE ER [Suspect]
     Active Substance: METFORMIN HYDROCHLORIDE
     Indication: DIABETES MELLITUS
     Dosage: 500 MG, BID
     Route: 065
  8. GLIMEPIRIDE. [Suspect]
     Active Substance: GLIMEPIRIDE
     Indication: DIABETES MELLITUS
     Dosage: 1 MG, 1 /DAY FOR 5 YEARS
     Route: 065
  9. VILDAGLIPTIN [Concomitant]
     Active Substance: VILDAGLIPTIN
     Indication: DIABETES MELLITUS
     Dosage: 50 MG, UNK
     Route: 065
  10. INSULIN [Concomitant]
     Active Substance: INSULIN NOS
     Dosage: 68, 1 /DAY, DAY 1 OF HOSPILATIZATION EVERY 24 HOURS
     Route: 065
  11. INSULIN [Concomitant]
     Active Substance: INSULIN NOS
     Dosage: 28 UNITS OF SHORT ACTING INSULIN AND 16 UNITS OF INTERMEDIATE ACTING INSULIN
     Route: 058
  12. INSULIN [Concomitant]
     Active Substance: INSULIN NOS
     Dosage: 78 IU, DAILY, DAY 5 OF HOSPILATIZATION EVERY 24 HOUR
     Route: 065
  13. INSULIN [Concomitant]
     Active Substance: INSULIN NOS
     Dosage: 174 IU, DAILY, DAY 15 OF HOSPILATIZATION EVERY 24 HOUR
     Route: 065
  14. INSULIN [Concomitant]
     Active Substance: INSULIN NOS
     Dosage: 444 IU, DAILY, DAY 50 OF HOSPILATIZATION, EVERY 24 HOUR
     Route: 065
  15. INSULIN [Concomitant]
     Active Substance: INSULIN NOS
     Dosage: 68 IU, 1 /DAY, DAY 2 OF HOSPILATIZATION EVERY 24 HOURS
     Route: 065
  16. MIGLITOL. [Concomitant]
     Active Substance: MIGLITOL
     Indication: DIABETES MELLITUS
     Dosage: 37.5 MG, UNK
     Route: 065

REACTIONS (6)
  - Hypoaesthesia [Unknown]
  - Hemiparesis [Unknown]
  - Diabetes mellitus inadequate control [Unknown]
  - Insulin resistance [Unknown]
  - Paraesthesia [Unknown]
  - Vision blurred [Unknown]
